FAERS Safety Report 25333576 (Version 1)
Quarter: 2025Q2

REPORT INFORMATION
  Report Type: Report from Study
  Country: CA (occurrence: CA)
  Receive Date: 20250520
  Receipt Date: 20250520
  Transmission Date: 20250716
  Serious: Yes (Other)
  Sender: SANDOZ
  Company Number: CA-SANDOZ-SDZ2024CA048209

PATIENT
  Age: 68 Year
  Sex: Female

DRUGS (3)
  1. HYRIMOZ [Suspect]
     Active Substance: ADALIMUMAB-ADAZ
     Indication: Rheumatoid arthritis
     Dosage: 40MG SC Q2SEMAINES;EVERY TWO WEEKS
     Route: 058
     Dates: start: 20220425
  2. HYRIMOZ [Suspect]
     Active Substance: ADALIMUMAB-ADAZ
     Dosage: 40MG SC EVERY 2 WEEKS;BI-WEEKLY
     Route: 058
     Dates: start: 20250505
  3. HYRIMOZ [Suspect]
     Active Substance: ADALIMUMAB-ADAZ
     Route: 065

REACTIONS (8)
  - Gastrointestinal disorder [Unknown]
  - Wound abscess [Unknown]
  - Inflammation of wound [Unknown]
  - General physical health deterioration [Unknown]
  - Spinal osteoarthritis [Unknown]
  - Wound [Not Recovered/Not Resolved]
  - Finger deformity [Unknown]
  - Product dose omission issue [Unknown]

NARRATIVE: CASE EVENT DATE: 20250415
